FAERS Safety Report 5809336-0 (Version None)
Quarter: 2008Q3

REPORT INFORMATION
  Report Type: 
  Country: None (occurrence: None)
  Receive Date: 20080714
  Receipt Date: 20080702
  Transmission Date: 20090109
  Serious: Yes (Other)
  Sender: FDA-Public Use
  Company Number: PHNU2008DE00774

PATIENT
  Sex: Male

DRUGS (6)
  1. RASILEZ [Suspect]
     Dosage: 300 MG/DAY
     Route: 048
     Dates: start: 20071221
  2. HYDROCHLOROTHIAZIDE [Concomitant]
     Indication: HYPERTENSION
     Dosage: 12.5 MG
     Dates: start: 20050530, end: 20071220
  3. HYDROCHLOROTHIAZIDE [Concomitant]
     Dosage: 25 MG
     Dates: start: 20071221
  4. BISOPROLOL FUMARATE [Concomitant]
     Indication: HYPERTENSION
     Dosage: 5 MG/DAY
     Dates: start: 19970101
  5. ATORVASTATIN CALCIUM [Concomitant]
     Indication: HYPERLIPIDAEMIA
     Dosage: 20 MG/DAY
     Dates: start: 20071214
  6. CANDESARTAN [Concomitant]
     Indication: HYPERTENSION
     Dosage: 32 MG/DAY
     Dates: start: 20071210

REACTIONS (5)
  - BLOOD CREATININE INCREASED [None]
  - BLOOD UREA INCREASED [None]
  - DRUG EFFECT DECREASED [None]
  - PROTEIN URINE PRESENT [None]
  - RENAL FAILURE CHRONIC [None]
